FAERS Safety Report 18809938 (Version 1)
Quarter: 2021Q1

REPORT INFORMATION
  Report Type: Spontaneous
  Country: US (occurrence: US)
  Receive Date: 20210129
  Receipt Date: 20210129
  Transmission Date: 20210419
  Serious: Yes (Other)
  Sender: FDA-Public Use
  Company Number: US-MYLANLABS-2021M1005499

PATIENT
  Age: 11 Year
  Sex: Female

DRUGS (8)
  1. MEPOLIZUMAB [Suspect]
     Active Substance: MEPOLIZUMAB
     Indication: GRANULOMATOSIS WITH POLYANGIITIS
     Dosage: 300 MILLIGRAM, MONTHLY
     Route: 065
  2. DUPILUMAB [Suspect]
     Active Substance: DUPILUMAB
     Dosage: 300 MILLIGRAM, Q2W
     Route: 065
  3. BUDESONIDE. [Suspect]
     Active Substance: BUDESONIDE
     Indication: CHRONIC RHINOSINUSITIS WITH NASAL POLYPS
     Dosage: UNK, BID, SINUS RINSES
     Route: 065
  4. DUPILUMAB [Suspect]
     Active Substance: DUPILUMAB
     Indication: GRANULOMATOSIS WITH POLYANGIITIS
     Dosage: 600 MILLIGRAM, LOADING DOSE
     Route: 065
  5. PREDNISONE. [Suspect]
     Active Substance: PREDNISONE
     Dosage: 25 MILLIGRAM, QD
     Route: 065
  6. ALBUTEROL                          /00139501/ [Concomitant]
     Active Substance: ALBUTEROL
     Indication: CHRONIC RHINOSINUSITIS WITH NASAL POLYPS
     Dosage: AS REQUIRED
     Route: 065
  7. FORMOTEROL FUMARATE W/MOMETASONE FUROATE [Concomitant]
     Indication: CHRONIC RHINOSINUSITIS WITH NASAL POLYPS
     Dosage: DOSE: 200MCG/5MCG...
     Route: 065
  8. PREDNISONE. [Suspect]
     Active Substance: PREDNISONE
     Indication: CHRONIC RHINOSINUSITIS WITH NASAL POLYPS
     Dosage: 10 MILLIGRAM, QD
     Route: 065

REACTIONS (2)
  - Drug ineffective [Unknown]
  - Rebound effect [Unknown]
